FAERS Safety Report 13994704 (Version 1)
Quarter: 2017Q3

REPORT INFORMATION
  Report Type: Spontaneous
  Country: US (occurrence: US)
  Receive Date: 20170921
  Receipt Date: 20170921
  Transmission Date: 20171128
  Serious: Yes (Other)
  Sender: FDA-Public Use
  Company Number: US-TORRENT-00003383

PATIENT
  Age: 54 Year
  Sex: Female
  Weight: 79 kg

DRUGS (2)
  1. CITALOPRAM [Suspect]
     Active Substance: CITALOPRAM HYDROBROMIDE
  2. BUPROPION. [Suspect]
     Active Substance: BUPROPION

REACTIONS (10)
  - Anxiety [Recovered/Resolved]
  - Feeling abnormal [Recovered/Resolved]
  - Insomnia [Recovered/Resolved]
  - Abnormal behaviour [Unknown]
  - Suicidal ideation [Recovered/Resolved]
  - Drug withdrawal syndrome [Unknown]
  - Depression [Recovering/Resolving]
  - Head discomfort [Recovered/Resolved]
  - Disturbance in attention [Unknown]
  - Loss of consciousness [Unknown]

NARRATIVE: CASE EVENT DATE: 20170820
